FAERS Safety Report 14231603 (Version 4)
Quarter: 2018Q1

REPORT INFORMATION
  Report Type: Spontaneous
  Country: US (occurrence: US)
  Receive Date: 20171128
  Receipt Date: 20180103
  Transmission Date: 20180508
  Serious: Yes (Hospitalization)
  Sender: FDA-Public Use
  Company Number: US-JNJFOC-20171125639

PATIENT
  Age: 55 Year
  Sex: Female
  Weight: 83.92 kg

DRUGS (12)
  1. INVEGA SUSTENNA [Suspect]
     Active Substance: PALIPERIDONE PALMITATE
     Indication: SCHIZOPHRENIA
     Route: 030
     Dates: start: 20170617
  2. LEVOTHYROXINE. [Concomitant]
     Active Substance: LEVOTHYROXINE
     Indication: PRODUCT USED FOR UNKNOWN INDICATION
     Route: 065
  3. INVEGA SUSTENNA [Suspect]
     Active Substance: PALIPERIDONE PALMITATE
     Indication: SCHIZOPHRENIA
     Route: 030
     Dates: start: 201705, end: 2017
  4. HYDROXYZINE HYDROCHLORIDE. [Concomitant]
     Active Substance: HYDROXYZINE HYDROCHLORIDE
     Indication: PRODUCT USED FOR UNKNOWN INDICATION
     Dosage: AT 1 AM AND 1 PM
     Route: 065
  5. LYRICA [Concomitant]
     Active Substance: PREGABALIN
     Indication: PRODUCT USED FOR UNKNOWN INDICATION
     Route: 065
  6. OLANZAPINE ODT [Concomitant]
     Active Substance: OLANZAPINE
     Indication: AGITATION
     Route: 048
  7. DESYREL [Concomitant]
     Active Substance: TRAZODONE HYDROCHLORIDE
     Indication: PRODUCT USED FOR UNKNOWN INDICATION
     Dosage: DOSE: 300 (UNITS UNSPECIFIED) AT PM
     Route: 065
  8. FISH OIL [Concomitant]
     Active Substance: FISH OIL
     Indication: PRODUCT USED FOR UNKNOWN INDICATION
     Route: 065
  9. BENZATROPINE [Concomitant]
     Active Substance: BENZTROPINE
     Indication: PRODUCT USED FOR UNKNOWN INDICATION
     Dosage: AT 1 AM AND 1 PM
     Route: 065
  10. THYROID [Concomitant]
     Active Substance: LEVOTHYROXINE\LIOTHYRONINE
     Indication: PRODUCT USED FOR UNKNOWN INDICATION
     Route: 065
  11. CLOZARIL [Concomitant]
     Active Substance: CLOZAPINE
     Indication: PRODUCT USED FOR UNKNOWN INDICATION
     Dosage: AT 2 AM AND 2 PM
     Route: 065
  12. CLOZAPINE. [Concomitant]
     Active Substance: CLOZAPINE
     Indication: SCHIZOPHRENIA
     Dosage: ONCE IN THE MORNING AND ONCE AT NIGHT
     Route: 065

REACTIONS (9)
  - Hallucination, auditory [Recovered/Resolved]
  - Imprisonment [Unknown]
  - Impatience [Not Recovered/Not Resolved]
  - Off label use [Unknown]
  - Homicidal ideation [Not Recovered/Not Resolved]
  - Inappropriate schedule of drug administration [Unknown]
  - Agitation [Not Recovered/Not Resolved]
  - Drug ineffective [Unknown]
  - Suicide attempt [Unknown]

NARRATIVE: CASE EVENT DATE: 2017
